FAERS Safety Report 9422282 (Version 1)
Quarter: 2013Q3

REPORT INFORMATION
  Report Type: Spontaneous
  Country: US (occurrence: None)
  Receive Date: 20130725
  Receipt Date: 20130725
  Transmission Date: 20140515
  Serious: Yes (Hospitalization)
  Sender: FDA-Public Use
  Company Number: None

PATIENT
  Age: 60 Year
  Sex: Male
  Weight: 76.8 kg

DRUGS (1)
  1. NORTRIPTYLINE [Suspect]
     Indication: DEPRESSION
     Route: 048
     Dates: start: 20130420, end: 20130508

REACTIONS (1)
  - Dyskinesia [None]
